FAERS Safety Report 22773462 (Version 3)
Quarter: 2023Q4

REPORT INFORMATION
  Report Type: Spontaneous
  Country: US (occurrence: US)
  Receive Date: 20230801
  Receipt Date: 20231024
  Transmission Date: 20240110
  Serious: No
  Sender: FDA-Public Use
  Company Number: US-PFIZER INC-PV202300132412

PATIENT
  Age: 41 Year
  Sex: Female

DRUGS (1)
  1. OXBRYTA [Suspect]
     Active Substance: VOXELOTOR
     Dosage: 1500 MG, DAILY (3 TABLETS ONCE DAILY, ORALLY)
     Route: 048
     Dates: start: 2019

REACTIONS (2)
  - Abdominal discomfort [Unknown]
  - Product dose omission issue [Unknown]
